FAERS Safety Report 14515524 (Version 1)
Quarter: 2018Q1

REPORT INFORMATION
  Report Type: Report from Study
  Country: US (occurrence: US)
  Receive Date: 20180210
  Receipt Date: 20180210
  Transmission Date: 20180509
  Serious: No
  Sender: FDA-Public Use
  Company Number: US-PUMA BIOTECHNOLOGY, LTD.-2017US014695

PATIENT

DRUGS (3)
  1. NERLYNX [Suspect]
     Active Substance: NERATINIB
     Indication: BREAST CANCER FEMALE
     Dosage: 6 TABLETS (240MG), DAILY
     Route: 048
     Dates: start: 20171017
  2. IMODIUM [Concomitant]
     Active Substance: LOPERAMIDE HYDROCHLORIDE
     Indication: DIARRHOEA
  3. NERLYNX [Suspect]
     Active Substance: NERATINIB
     Dosage: 4 TABLETS (160MG), DAILY
     Route: 048

REACTIONS (4)
  - Diarrhoea [Unknown]
  - Incorrect dose administered [Unknown]
  - Rash [Unknown]
  - Abdominal discomfort [Unknown]

NARRATIVE: CASE EVENT DATE: 201710
